FAERS Safety Report 4681556-0 (Version None)
Quarter: 2005Q2

REPORT INFORMATION
  Report Type: 
  Country: None (occurrence: None)
  Receive Date: 20050603
  Receipt Date: 20050524
  Transmission Date: 20051028
  Serious: Yes (Death, Other)
  Sender: FDA-Public Use
  Company Number: US-ABBOTT-05P-163-0301949-00

PATIENT

DRUGS (1)
  1. VALPROIC ACID [Suspect]
     Indication: EPILEPSY
     Dosage: NOT REPORTED

REACTIONS (3)
  - BLOOD ALBUMIN DECREASED [None]
  - RENAL TUBULAR DISORDER [None]
  - SEPSIS [None]
